FAERS Safety Report 7867830-5 (Version None)
Quarter: 2011Q4

REPORT INFORMATION
  Report Type: 
  Country: None (occurrence: None)
  Receive Date: 20111028
  Receipt Date: 20111019
  Transmission Date: 20120403
  Serious: Yes (Death, Other)
  Sender: FDA-Public Use
  Company Number: JP-CELGENEUS-087-50794-11070669

PATIENT
  Sex: Female
  Weight: 42 kg

DRUGS (21)
  1. ZOLPIDEM [Concomitant]
     Dosage: 5 MILLIGRAM
     Route: 048
     Dates: end: 20110617
  2. LOXONIN [Concomitant]
     Dosage: 60 MILLIGRAM
     Route: 048
     Dates: end: 20110618
  3. GRANISETRON HCL [Concomitant]
     Dosage: 3 MILLIGRAM
     Route: 041
     Dates: start: 20110512, end: 20110515
  4. DORIPENEM MONOHYDRATE [Concomitant]
     Dosage: 1.5 GRAM
     Route: 041
     Dates: start: 20110618, end: 20110626
  5. VANCOMYCIN HYCHLORIDE [Concomitant]
     Dosage: 1 GRAM
     Route: 041
     Dates: start: 20110618, end: 20110625
  6. VIDAZA [Suspect]
     Dosage: 75 MILLIGRAM/SQ. METER
     Route: 058
     Dates: start: 20110512, end: 20110518
  7. VENOGLOBULIN [Concomitant]
     Dosage: 5 GRAM
     Route: 041
     Dates: start: 20110618, end: 20110619
  8. OMEPRAZOLE [Concomitant]
     Dosage: 10 MILLIGRAM
     Route: 048
     Dates: end: 20110618
  9. GRAN [Concomitant]
     Dosage: 75 MICROGRAM
     Route: 041
     Dates: start: 20110606, end: 20110607
  10. ALENDRONATE SODIUM [Concomitant]
     Dosage: 35 MICROGRAM
     Route: 048
     Dates: end: 20110615
  11. PRIMOBOLAN-DEPOT INJ [Concomitant]
     Dosage: 15 MILLIGRAM
     Route: 048
     Dates: end: 20110618
  12. PRORENAL [Concomitant]
     Dosage: 15 MILLIGRAM
     Route: 048
     Dates: start: 20110609, end: 20110617
  13. AMBISOME [Concomitant]
     Dosage: 200 MILLIGRAM
     Route: 041
     Dates: start: 20110619, end: 20110625
  14. MAGMITT [Concomitant]
     Dosage: 1980 MILLIGRAM
     Route: 048
     Dates: end: 20110618
  15. EXJADE [Concomitant]
     Dosage: 1000 MILLIGRAM
     Route: 048
     Dates: end: 20110618
  16. GRAN [Concomitant]
     Dosage: 150 MICROGRAM
     Route: 041
     Dates: start: 20110615, end: 20110622
  17. PHENYTOIN SODIUM CAP [Concomitant]
     Dosage: 125 MILLIGRAM
     Route: 041
     Dates: start: 20110618, end: 20110622
  18. ALFAROL [Concomitant]
     Dosage: 1 MICROGRAM
     Route: 048
     Dates: end: 20110618
  19. PRIMPERAN TAB [Concomitant]
     Dosage: 15 MILLIGRAM
     Route: 048
     Dates: end: 20110618
  20. MUCOSTA [Concomitant]
     Dosage: 100 MILLIGRAM
     Route: 048
     Dates: end: 20110618
  21. VIRUHEXAL [Concomitant]
     Dosage: 400 MILLIGRAM
     Route: 041
     Dates: start: 20110618, end: 20110626

REACTIONS (4)
  - MENINGITIS BACTERIAL [None]
  - PNEUMONIA [None]
  - CARDIOVASCULAR INSUFFICIENCY [None]
  - ACUTE SINUSITIS [None]
